FAERS Safety Report 6643046-5 (Version None)
Quarter: 2010Q1

REPORT INFORMATION
  Report Type: 
  Country: None (occurrence: None)
  Receive Date: 20100319
  Receipt Date: 20100312
  Transmission Date: 20100710
  Serious: Yes (Life-Threatening, Hospitalization)
  Sender: FDA-Public Use
  Company Number: Z0002811A

PATIENT
  Sex: Female
  Weight: 90 kg

DRUGS (3)
  1. ZANAMIVIR [Suspect]
     Indication: INFLUENZA
     Route: 042
     Dates: start: 20091217, end: 20091221
  2. CELOCURINE [Suspect]
     Route: 042
     Dates: start: 20100106, end: 20100106
  3. HALOPERIDOL [Suspect]
     Indication: ANXIETY
     Route: 042
     Dates: start: 20100106, end: 20100106

REACTIONS (4)
  - CARDIAC ARREST [None]
  - EXTUBATION [None]
  - TORSADE DE POINTES [None]
  - VENTRICULAR ARRHYTHMIA [None]
